FAERS Safety Report 8517030 (Version 3)
Quarter: 2014Q3

REPORT INFORMATION
  Report Type: Spontaneous
  Country: US (occurrence: US)
  Receive Date: 20120417
  Receipt Date: 20140812
  Transmission Date: 20150326
  Serious: Yes (Death, Other)
  Sender: FDA-Public Use
  Company Number: US-CELGENEUS-163-21880-12041174

PATIENT

DRUGS (7)
  1. REVLIMID [Suspect]
     Active Substance: LENALIDOMIDE
     Indication: CHRONIC LYMPHOCYTIC LEUKAEMIA
     Dosage: 2.5 MILLIGRAM
     Route: 048
  2. REVLIMID [Suspect]
     Active Substance: LENALIDOMIDE
     Dosage: 10 MILLIGRAM
     Route: 048
  3. RITUXIMAB [Suspect]
     Active Substance: RITUXIMAB
     Route: 041
  4. ALLOPURINOL. [Concomitant]
     Active Substance: ALLOPURINOL
     Indication: PRODUCT USED FOR UNKNOWN INDICATION
     Dosage: 300 MILLIGRAM
     Route: 065
  5. RITUXIMAB [Suspect]
     Active Substance: RITUXIMAB
     Indication: CHRONIC LYMPHOCYTIC LEUKAEMIA
     Route: 041
  6. RITUXIMAB [Suspect]
     Active Substance: RITUXIMAB
     Route: 041
  7. ASPIRIN. [Concomitant]
     Active Substance: ASPIRIN
     Indication: PROPHYLAXIS
     Dosage: 81 MILLIGRAM
     Route: 065

REACTIONS (53)
  - Hyperphosphataemia [Unknown]
  - Pneumonia [Unknown]
  - Dyspnoea [Unknown]
  - Arthralgia [Unknown]
  - Renal failure [Unknown]
  - Urticaria [Unknown]
  - Infusion related reaction [Unknown]
  - Hyperbilirubinaemia [Unknown]
  - Urinary retention [Unknown]
  - Tumour flare [Unknown]
  - Neutropenia [Unknown]
  - Aspartate aminotransferase increased [Unknown]
  - Alanine aminotransferase increased [Unknown]
  - Myalgia [Unknown]
  - Chills [Unknown]
  - Hyponatraemia [Unknown]
  - Hypotension [Unknown]
  - Pyrexia [Unknown]
  - Decreased appetite [Unknown]
  - Hypokalaemia [Unknown]
  - Neuropathy peripheral [Unknown]
  - Myocardial infarction [Unknown]
  - Abdominal pain [Unknown]
  - Chronic lymphocytic leukaemia [Unknown]
  - Oedema [Unknown]
  - Supraventricular tachycardia [Unknown]
  - Hypophosphataemia [Unknown]
  - Blood creatinine [Unknown]
  - Vomiting [Unknown]
  - Death [Fatal]
  - Haemorrhage [Unknown]
  - Tumour lysis syndrome [Unknown]
  - Fatigue [Unknown]
  - Febrile neutropenia [Unknown]
  - Transaminases [Unknown]
  - Hypersensitivity [Unknown]
  - Diarrhoea [Unknown]
  - Nausea [Unknown]
  - Hypoalbuminaemia [Unknown]
  - Anaemia [Unknown]
  - Thrombocytopenia [Unknown]
  - Thrombosis [Unknown]
  - Bacteraemia [Unknown]
  - Cellulitis [Unknown]
  - Hyperglycaemia [Unknown]
  - Skin infection [Unknown]
  - Musculoskeletal pain [Unknown]
  - Post polio syndrome [Unknown]
  - Hypoglycaemia [Unknown]
  - Rash [Unknown]
  - Hypocalcaemia [Unknown]
  - Chest pain [Unknown]
  - Syncope [Unknown]
